FAERS Safety Report 6128467-1 (Version None)
Quarter: 2009Q1

REPORT INFORMATION
  Report Type: 
  Country: None (occurrence: None)
  Receive Date: 20090323
  Receipt Date: 20090312
  Transmission Date: 20090719
  Serious: Yes (Other)
  Sender: FDA-Public Use
  Company Number: BE-JNJFOC-20090302568

PATIENT
  Sex: Female
  Weight: 58 kg

DRUGS (1)
  1. REMICADE [Suspect]
     Indication: CROHN'S DISEASE
     Dosage: TOTAL OF 36 INFUSIONS ADMINISTERED
     Route: 042

REACTIONS (1)
  - HODGKIN'S DISEASE NODULAR SCLEROSIS STAGE II SUPRADIAPHRAGMATIC [None]
